FAERS Safety Report 18760143 (Version 2)
Quarter: 2021Q1

REPORT INFORMATION
  Report Type: Spontaneous
  Country: GB (occurrence: GB)
  Receive Date: 20210120
  Receipt Date: 20210204
  Transmission Date: 20210419
  Serious: Yes (Other)
  Sender: FDA-Public Use
  Company Number: GB-ADVANZ PHARMA-202101000333

PATIENT

DRUGS (3)
  1. PREDNISOLONE. [Suspect]
     Active Substance: PREDNISOLONE
     Dosage: WEANING DOSE OF STEROID BETWEEN JUNE AND SEPTEMBER 2018
     Dates: start: 2018
  2. PREDNISOLONE. [Suspect]
     Active Substance: PREDNISOLONE
     Indication: CONDITION AGGRAVATED
     Dosage: UNK, HIGH DOSE
  3. PREDNISOLONE. [Suspect]
     Active Substance: PREDNISOLONE
     Indication: BRONCHOPULMONARY ASPERGILLOSIS ALLERGIC
     Dosage: 50 MG, QD (DOSE INCREASED)
     Route: 048

REACTIONS (10)
  - Weight increased [Unknown]
  - Drug intolerance [Unknown]
  - Fluid retention [Unknown]
  - Fatigue [Unknown]
  - Oral candidiasis [Unknown]
  - Insomnia [Unknown]
  - Toxicity to various agents [Unknown]
  - Gastrooesophageal reflux disease [Unknown]
  - Depressed mood [Unknown]
  - Drug ineffective [Unknown]
